FAERS Safety Report 10672294 (Version 2)
Quarter: 2015Q1

REPORT INFORMATION
  Report Type: Spontaneous
  Country: US (occurrence: US)
  Receive Date: 20141223
  Receipt Date: 20150123
  Transmission Date: 20150720
  Serious: Yes (Hospitalization, Other)
  Sender: FDA-Public Use
  Company Number: US-BAYER-2014-185366

PATIENT
  Age: 28 Year
  Sex: Female
  Weight: 97.52 kg

DRUGS (5)
  1. MIRENA [Suspect]
     Active Substance: LEVONORGESTREL
     Indication: CONTRACEPTION
     Dosage: 20 MCG/24HR, CONT
     Route: 015
     Dates: start: 20040427, end: 20040608
  2. CIPROFLOXACIN. [Concomitant]
     Active Substance: CIPROFLOXACIN
  3. IMODIUM [Concomitant]
     Active Substance: LOPERAMIDE HYDROCHLORIDE
  4. REGLAN [Concomitant]
     Active Substance: METOCLOPRAMIDE HYDROCHLORIDE
  5. LORTAB [Concomitant]
     Active Substance: ACETAMINOPHEN\HYDROCODONE BITARTRATE

REACTIONS (11)
  - Injury [None]
  - Uterine perforation [None]
  - Device dislocation [None]
  - Pain [None]
  - Vomiting [None]
  - Diarrhoea [None]
  - Emotional distress [None]
  - Depression [None]
  - Anxiety [None]
  - Abdominal infection [None]
  - Device difficult to use [None]

NARRATIVE: CASE EVENT DATE: 2004
